FAERS Safety Report 5021600-4 (Version None)
Quarter: 2006Q2

REPORT INFORMATION
  Report Type: 
  Country: None (occurrence: None)
  Receive Date: 20060601
  Receipt Date: 20060310
  Transmission Date: 20061013
  Serious: No
  Sender: FDA-Public Use
  Company Number: 2006PV010038

PATIENT
  Age: 59 Year
  Sex: Male
  Weight: 106.5953 kg

DRUGS (2)
  1. BYETTA [Suspect]
     Indication: DIABETES MELLITUS
     Dosage: 5 MCG;BID;SC
     Route: 058
     Dates: start: 20000309, end: 20060310
  2. LANTUS [Concomitant]

REACTIONS (5)
  - BLOOD GLUCOSE INCREASED [None]
  - DIZZINESS [None]
  - FATIGUE [None]
  - NAUSEA [None]
  - TREMOR [None]
